FAERS Safety Report 17109619 (Version 6)
Quarter: 2020Q3

REPORT INFORMATION
  Report Type: Spontaneous
  Country: FR (occurrence: FR)
  Receive Date: 20191204
  Receipt Date: 20200903
  Transmission Date: 20201102
  Serious: Yes (Hospitalization, Other)
  Sender: FDA-Public Use
  Company Number: FR-AUROBINDO-AUR-APL-2019-094126

PATIENT
  Age: 58 Year
  Sex: Female

DRUGS (5)
  1. QUETIAPINE. [Suspect]
     Active Substance: QUETIAPINE
     Indication: BIPOLAR DISORDER
     Dosage: 150 MILLIGRAM, ONCE A DAY,PROLONGED RELEASE FORM; A LONG?TERM TREATMENT
     Route: 065
  2. DARUNAVIR FILM COATED TABLETS [Interacting]
     Active Substance: DARUNAVIR
     Indication: HIV INFECTION
  3. RITONAVIR. [Interacting]
     Active Substance: RITONAVIR
     Indication: ANTIRETROVIRAL THERAPY
     Dosage: 100 MILLIGRAM (BOOSTED BY 100MG)
     Route: 065
  4. DARUNAVIR FILM COATED TABLETS [Interacting]
     Active Substance: DARUNAVIR
     Indication: ANTIRETROVIRAL THERAPY
     Dosage: 800 MILLIGRAM
     Route: 048
  5. RITONAVIR. [Interacting]
     Active Substance: RITONAVIR
     Indication: HIV INFECTION

REACTIONS (8)
  - Syncope [Unknown]
  - Drug interaction [Unknown]
  - Psychomotor skills impaired [Unknown]
  - Overdose [Unknown]
  - Treatment noncompliance [Unknown]
  - Psychomotor retardation [Unknown]
  - Contraindicated product administered [Unknown]
  - Electrocardiogram QT prolonged [Unknown]
